FAERS Safety Report 19450762 (Version 1)
Quarter: 2021Q2

REPORT INFORMATION
  Report Type: Spontaneous
  Country: US (occurrence: US)
  Receive Date: 20210622
  Receipt Date: 20210622
  Transmission Date: 20210717
  Serious: No
  Sender: FDA-Public Use
  Company Number: US-MYLANLABS-2021M1031433

PATIENT
  Sex: Female

DRUGS (1)
  1. NORETHINDRONE TABLETS, USP [Suspect]
     Active Substance: NORETHINDRONE
     Indication: MIGRAINE
     Dosage: UNK
     Route: 048

REACTIONS (1)
  - Off label use [Not Recovered/Not Resolved]
